FAERS Safety Report 8797942 (Version 2)
Quarter: 2012Q4

REPORT INFORMATION
  Report Type: 
  Country: US (occurrence: US)
  Receive Date: 20120920
  Receipt Date: 20120927
  Transmission Date: 20130627
  Serious: No
  Sender: FDA-Public Use
  Company Number: US-B.I. PHARMACEUTICALS,INC./RIDGEFIELD-2012-BP-22503BP

PATIENT
  Sex: Male

DRUGS (9)
  1. PRADAXA [Suspect]
     Indication: ATRIAL FIBRILLATION
     Dates: start: 20110425
  2. ASPIRIN [Concomitant]
     Dosage: 81 mg
  3. FOSINOPRIL [Concomitant]
     Dosage: 10 mg
  4. FUROSEMIDE [Concomitant]
     Dosage: 40 mg
  5. POTASSIUM CHLORIDE [Concomitant]
     Dosage: 10 mEq
  6. METOPROLOL SUCCINATE [Concomitant]
     Dosage: 100 mg
  7. SIMVASTATIN [Concomitant]
     Dosage: 10 mg
  8. VITAMIN B12 [Concomitant]
     Dosage: 1000 mcg
  9. VITAMIN D3 [Concomitant]

REACTIONS (1)
  - Retinal vein occlusion [Not Recovered/Not Resolved]
